FAERS Safety Report 4836292-4 (Version None)
Quarter: 2005Q4

REPORT INFORMATION
  Report Type: 
  Country: None (occurrence: None)
  Receive Date: 20051118
  Receipt Date: 20051110
  Transmission Date: 20060501
  Serious: Yes (Hospitalization, Other)
  Sender: FDA-Public Use
  Company Number: US-2004-030599

PATIENT
  Age: 31 Year
  Sex: Female
  Weight: 57.6 kg

DRUGS (1)
  1. MIRENA [Suspect]
     Indication: CONTRACEPTION
     Dosage: 20 UG/DAY, CONT, INTRA-UTERINE
     Route: 015
     Dates: start: 20040729

REACTIONS (8)
  - ABORTION SPONTANEOUS [None]
  - DISCOMFORT [None]
  - DRUG EXPOSURE DURING PREGNANCY [None]
  - INFECTION [None]
  - PAIN [None]
  - PREGNANCY WITH CONTRACEPTIVE DEVICE [None]
  - PYREXIA [None]
  - VOMITING IN PREGNANCY [None]
